FAERS Safety Report 20302361 (Version 1)
Quarter: 2022Q1

REPORT INFORMATION
  Report Type: Spontaneous
  Country: US (occurrence: US)
  Receive Date: 20220106
  Receipt Date: 20220106
  Transmission Date: 20220423
  Serious: Yes (Other)
  Sender: FDA-Public Use
  Company Number: US-CIPLA (EU) LIMITED-2021US08388

PATIENT

DRUGS (2)
  1. ALBUTEROL [Suspect]
     Active Substance: ALBUTEROL
     Indication: Product used for unknown indication
     Dosage: UNK
     Route: 065
  2. ALBUTEROL [Suspect]
     Active Substance: ALBUTEROL
     Dosage: UNK, SECOND INHALER
     Route: 065
     Dates: start: 20211225

REACTIONS (7)
  - Thrombosis [Recovering/Resolving]
  - Dizziness [Unknown]
  - Eye injury [Recovering/Resolving]
  - Injury associated with device [Unknown]
  - Product quality issue [Unknown]
  - Device malfunction [Unknown]
  - Product design issue [Unknown]

NARRATIVE: CASE EVENT DATE: 20211225
